FAERS Safety Report 14620421 (Version 1)
Quarter: 2018Q1

REPORT INFORMATION
  Report Type: Spontaneous
  Country: None (occurrence: US)
  Receive Date: 20180309
  Receipt Date: 20180309
  Transmission Date: 20180509
  Serious: No
  Sender: FDA-Public Use
  Company Number: US-ALLERGAN-1772235US

PATIENT
  Sex: Male

DRUGS (1)
  1. OZURDEX [Suspect]
     Active Substance: DEXAMETHASONE
     Indication: PRODUCT USED FOR UNKNOWN INDICATION
     Dosage: 0.7 MG, SINGLE
     Route: 031

REACTIONS (3)
  - Needle issue [Unknown]
  - Product administered at inappropriate site [Unknown]
  - Complication of device insertion [Unknown]
